FAERS Safety Report 11685994 (Version 4)
Quarter: 2017Q2

REPORT INFORMATION
  Report Type: Spontaneous
  Country: JP (occurrence: JP)
  Receive Date: 20151030
  Receipt Date: 20170406
  Transmission Date: 20170829
  Serious: Yes (Life-Threatening, Hospitalization, Disabling, Other)
  Sender: FDA-Public Use
  Company Number: JP-VIIV HEALTHCARE LIMITED-JP2015JPN152730

PATIENT
  Age: 52 Year
  Sex: Male

DRUGS (15)
  1. RETROVIR [Suspect]
     Active Substance: ZIDOVUDINE
     Dosage: 2 DF, BID
     Route: 048
     Dates: start: 200603, end: 201504
  2. JZOLOFT [Concomitant]
     Active Substance: SERTRALINE HYDROCHLORIDE
     Indication: DEPRESSION
     Dosage: 4 DF, QD
     Dates: start: 201112
  3. LOPEMIN [Concomitant]
     Active Substance: LOPERAMIDE HYDROCHLORIDE
     Dosage: UNK
  4. AMOBAN [Concomitant]
     Active Substance: ZOPICLONE
     Dosage: UNK
  5. CONSTAN [Concomitant]
     Active Substance: ALPRAZOLAM
     Dosage: UNK
  6. BENZALIN (JAPAN) [Concomitant]
     Active Substance: NITRAZEPAM
     Dosage: UNK
  7. REFLEX [Concomitant]
     Active Substance: MIRTAZAPINE
     Dosage: UNK
  8. SELBEX [Concomitant]
     Active Substance: TEPRENONE
     Dosage: UNK
  9. TRUVADA [Concomitant]
     Active Substance: EMTRICITABINE\TENOFOVIR DISOPROXIL FUMARATE
     Indication: HIV INFECTION
     Dosage: 1 DF, QD
     Route: 048
     Dates: start: 200603
  10. IRRIBOW [Concomitant]
     Active Substance: RAMOSETRON HYDROCHLORIDE
     Dosage: UNK
  11. ISENTRESS [Suspect]
     Active Substance: RALTEGRAVIR POTASSIUM
     Indication: HIV INFECTION
     Dosage: 1 DF, BID
     Route: 048
     Dates: start: 201205
  12. BIOFERMIN R (JAPAN) [Concomitant]
     Dosage: UNK
  13. RETROVIR [Suspect]
     Active Substance: ZIDOVUDINE
     Indication: HIV INFECTION
     Dosage: 2 DF, BID
     Route: 048
     Dates: start: 199609, end: 199910
  14. ZIAGEN [Suspect]
     Active Substance: ABACAVIR SULFATE
     Dosage: UNK
     Route: 048
  15. SEROQUEL [Suspect]
     Active Substance: QUETIAPINE FUMARATE
     Indication: DEPRESSION
     Dosage: 4 DF, QD
     Route: 048
     Dates: start: 201301, end: 201502

REACTIONS (14)
  - Autonomic nervous system imbalance [Recovered/Resolved with Sequelae]
  - Opportunistic infection [Unknown]
  - Myalgia [Unknown]
  - Eyelid ptosis [Recovered/Resolved with Sequelae]
  - Metabolic disorder [Unknown]
  - Renal impairment [Recovering/Resolving]
  - Hypocalcaemia [Recovering/Resolving]
  - Nervous system disorder [Not Recovered/Not Resolved]
  - Myoglobinuria [Recovering/Resolving]
  - Neuropathy peripheral [Recovered/Resolved with Sequelae]
  - Sensory disturbance [Recovered/Resolved with Sequelae]
  - Rhabdomyolysis [Recovered/Resolved]
  - Muscular weakness [Recovered/Resolved with Sequelae]
  - Incontinence [Recovered/Resolved with Sequelae]

NARRATIVE: CASE EVENT DATE: 20150227
